FAERS Safety Report 10758271 (Version 1)
Quarter: 2015Q1

REPORT INFORMATION
  Report Type: Spontaneous
  Country: US (occurrence: None)
  Receive Date: 20150202
  Receipt Date: 20150202
  Transmission Date: 20150721
  Serious: Yes (Other)
  Sender: FDA-Public Use
  Company Number: None

PATIENT
  Age: 18 Year
  Sex: Male
  Weight: 73.94 kg

DRUGS (1)
  1. ISOTRETINOIN 10MG AND 20MG [Suspect]
     Active Substance: ISOTRETINOIN
     Indication: ACNE
     Dosage: 1 PILL, QD, ORAL
     Route: 048
     Dates: start: 20150115, end: 20150120

REACTIONS (1)
  - Rash papular [None]

NARRATIVE: CASE EVENT DATE: 20150121
